FAERS Safety Report 6427611-6 (Version None)
Quarter: 2009Q4

REPORT INFORMATION
  Report Type: 
  Country: None (occurrence: None)
  Receive Date: 20091104
  Receipt Date: 20091020
  Transmission Date: 20100525
  Serious: Yes (Other)
  Sender: FDA-Public Use
  Company Number: CA-GENENTECH-293478

PATIENT
  Sex: Male

DRUGS (7)
  1. XOLAIR [Suspect]
     Indication: ASTHMA
     Dosage: 225 MG, 2/WEEK
     Route: 058
     Dates: start: 20080103
  2. XOLAIR [Suspect]
     Dosage: 225 MG, UNK
     Route: 058
     Dates: start: 20090610
  3. XOLAIR [Suspect]
     Dosage: 225 MG, 2/WEEK
     Dates: start: 20090903
  4. XOLAIR [Suspect]
     Dosage: UNK
     Route: 058
     Dates: start: 20091020
  5. VENTOLIN [Concomitant]
     Indication: DRUG USE FOR UNKNOWN INDICATION
  6. PREDNISONE TAB [Concomitant]
     Indication: DRUG USE FOR UNKNOWN INDICATION
  7. SALINE [Suspect]

REACTIONS (3)
  - ASTHMA [None]
  - CONDITION AGGRAVATED [None]
  - SINUS CONGESTION [None]
